FAERS Safety Report 11852757 (Version 2)
Quarter: 2016Q1

REPORT INFORMATION
  Report Type: Spontaneous
  Country: US (occurrence: US)
  Receive Date: 20151218
  Receipt Date: 20160205
  Transmission Date: 20160526
  Serious: Yes (Other)
  Sender: FDA-Public Use
  Company Number: US-ASTRAZENECA-2015SF26919

PATIENT
  Age: 17909 Day
  Sex: Female
  Weight: 131.1 kg

DRUGS (38)
  1. INSULIN [Concomitant]
     Active Substance: INSULIN NOS
  2. BENADRYL [Concomitant]
     Active Substance: DIPHENHYDRAMINE HYDROCHLORIDE
     Indication: RASH
     Dosage: 2-0.1 %, APPLY TO AFFECTED AREA EVERY 6 HOURS AS NEEDED
  3. ZOFRAN ODT [Concomitant]
     Active Substance: ONDANSETRON HYDROCHLORIDE
     Indication: NAUSEA
     Dosage: PLACE 1 TABLET (4 MG) UNDER TONGUE EVERY 8 HOURS AS NEEDED
  4. ZANAFLEX [Concomitant]
     Active Substance: TIZANIDINE HYDROCHLORIDE
     Indication: MUSCLE SPASMS
     Route: 048
  5. LIDOCAINE HYDROCHLORIDE. [Concomitant]
     Active Substance: LIDOCAINE HYDROCHLORIDE
     Indication: PAIN
     Dosage: APPLY PEA SIZE AMOUNT TO ANUS TID PRN
  6. BENADRYL [Concomitant]
     Active Substance: DIPHENHYDRAMINE HYDROCHLORIDE
     Indication: ERYTHEMA
     Dosage: 2-0.1 %, APPLY TO AFFECTED AREA EVERY 6 HOURS AS NEEDED
  7. XARELTO [Concomitant]
     Active Substance: RIVAROXABAN
     Route: 048
  8. SODIUM CHLORIDE. [Concomitant]
     Active Substance: SODIUM CHLORIDE
     Route: 040
     Dates: start: 20151118
  9. INVOKANA [Concomitant]
     Active Substance: CANAGLIFLOZIN
     Route: 048
  10. PRINIVIL [Concomitant]
     Active Substance: LISINOPRIL
     Route: 048
  11. SODIUM CHLORIDE. [Concomitant]
     Active Substance: SODIUM CHLORIDE
     Route: 040
     Dates: start: 20151118
  12. ZOFRAN ODT [Concomitant]
     Active Substance: ONDANSETRON HYDROCHLORIDE
     Indication: NAUSEA
     Route: 042
     Dates: start: 20151118
  13. ZOFRAN ODT [Concomitant]
     Active Substance: ONDANSETRON HYDROCHLORIDE
     Indication: VOMITING
     Route: 042
     Dates: start: 20151118
  14. CARDIZEM [Concomitant]
     Active Substance: DILTIAZEM HYDROCHLORIDE
     Indication: ATRIAL FIBRILLATION
     Route: 048
  15. NORVASC [Concomitant]
     Active Substance: AMLODIPINE BESYLATE
     Route: 048
  16. EFFEXOR XR [Concomitant]
     Active Substance: VENLAFAXINE HYDROCHLORIDE
     Indication: DEPRESSION
     Route: 048
  17. IMDUR [Concomitant]
     Active Substance: ISOSORBIDE MONONITRATE
     Route: 048
  18. MORPHINE [Concomitant]
     Active Substance: MORPHINE
     Route: 042
     Dates: start: 20151118
  19. SODIUM CHLORIDE. [Concomitant]
     Active Substance: SODIUM CHLORIDE
     Route: 040
     Dates: start: 20151118
  20. LANTUS SOLOSTAR [Concomitant]
     Active Substance: INSULIN GLARGINE
     Dosage: 100 UNIT/ML, 55 UNITS BY DAILY AT BEDTIME
     Route: 058
  21. LIPITOR [Concomitant]
     Active Substance: ATORVASTATIN CALCIUM
     Route: 048
  22. PERCOCET [Concomitant]
     Active Substance: ACETAMINOPHEN\OXYCODONE HYDROCHLORIDE
     Indication: PAIN
  23. ZOFRAN ODT [Concomitant]
     Active Substance: ONDANSETRON HYDROCHLORIDE
     Indication: VOMITING
     Dosage: PLACE 1 TABLET (4 MG) UNDER TONGUE EVERY 8 HOURS AS NEEDED
  24. OXYGEN. [Concomitant]
     Active Substance: OXYGEN
  25. KENALOG [Concomitant]
     Active Substance: TRIAMCINOLONE ACETONIDE
     Indication: VOMITING
     Dosage: APPLY TO AFFECTED AREA 2 TIMES DAILY
  26. COLACE [Concomitant]
     Active Substance: DOCUSATE SODIUM
     Route: 048
  27. BENADRYL [Concomitant]
     Active Substance: DIPHENHYDRAMINE HYDROCHLORIDE
     Indication: RASH
     Route: 048
  28. VISTARIL [Concomitant]
     Active Substance: HYDROXYZINE PAMOATE
     Indication: PRURITUS
  29. OMNIPAQUE [Concomitant]
     Active Substance: IOHEXOL
     Route: 048
     Dates: start: 20151118
  30. BYDUREON [Suspect]
     Active Substance: EXENATIDE
     Indication: TYPE 2 DIABETES MELLITUS
     Route: 058
     Dates: start: 20151026, end: 20151125
  31. NOVOLOG [Concomitant]
     Active Substance: INSULIN ASPART
     Dosage: 4 UNITS PLUS SLIDING SCALE WITH EACH MEAL, NOT TO EXCEED 100 UNITS PER DAY
  32. NITROSTAT [Concomitant]
     Active Substance: NITROGLYCERIN
     Indication: CHEST PAIN
     Dosage: UNDER THE TONGUE EVERY 5 MINUTES AS NEEDED
     Route: 060
  33. PROVENTIL VENTOLIN [Concomitant]
     Indication: DYSPNOEA
     Route: 055
  34. SYMBICORT [Concomitant]
     Active Substance: BUDESONIDE\FORMOTEROL FUMARATE DIHYDRATE
     Dosage: 160/4.5 MG, 2 PUFFS BY INHALATION 2 TIMES DAILY.
     Route: 055
  35. KENALOG [Concomitant]
     Active Substance: TRIAMCINOLONE ACETONIDE
     Indication: NAUSEA
     Dosage: APPLY TO AFFECTED AREA 2 TIMES DAILY
  36. BENADRYL [Concomitant]
     Active Substance: DIPHENHYDRAMINE HYDROCHLORIDE
     Indication: ERYTHEMA
     Route: 048
  37. ALDACTONE [Concomitant]
     Active Substance: SPIRONOLACTONE
     Route: 048
  38. TOPROL XL [Concomitant]
     Active Substance: METOPROLOL SUCCINATE
     Route: 048

REACTIONS (2)
  - Pancreatitis [Recovered/Resolved]
  - Urticaria [Unknown]

NARRATIVE: CASE EVENT DATE: 20151115
